FAERS Safety Report 15717975 (Version 1)
Quarter: 2018Q4

REPORT INFORMATION
  Report Type: Spontaneous
  Country: US (occurrence: US)
  Receive Date: 20181213
  Receipt Date: 20181213
  Transmission Date: 20190205
  Serious: No
  Sender: FDA-Public Use
  Company Number: US-ASTELLAS-2018US026413

PATIENT
  Sex: Male

DRUGS (4)
  1. HEMP OIL [Concomitant]
     Active Substance: CANNABIS SATIVA SEED OIL
     Indication: PRODUCT USED FOR UNKNOWN INDICATION
     Dosage: UNK UNK, UNKNOWN FREQ.
     Route: 065
  2. TARCEVA [Suspect]
     Active Substance: ERLOTINIB HYDROCHLORIDE
     Indication: CHOLANGIOCARCINOMA
  3. TARCEVA [Suspect]
     Active Substance: ERLOTINIB HYDROCHLORIDE
     Indication: METASTASES TO LIVER
     Route: 048
     Dates: start: 20180526
  4. CBD [Concomitant]
     Active Substance: CANNABIDIOL
     Indication: PRODUCT USED FOR UNKNOWN INDICATION
     Dosage: UNK UNK, UNKNOWN FREQ.
     Route: 065

REACTIONS (5)
  - Off label use [Unknown]
  - Diarrhoea [Not Recovered/Not Resolved]
  - Purpura [Not Recovered/Not Resolved]
  - Intentional product use issue [Unknown]
  - Rash [Not Recovered/Not Resolved]
